FAERS Safety Report 24048146 (Version 2)
Quarter: 2024Q3

REPORT INFORMATION
  Report Type: Spontaneous
  Country: US (occurrence: US)
  Receive Date: 20240703
  Receipt Date: 20240718
  Transmission Date: 20241017
  Serious: Yes (Life-Threatening, Hospitalization)
  Sender: TEVA
  Company Number: US-TEVA-VS-3214519

PATIENT
  Age: 75 Year
  Sex: Male

DRUGS (1)
  1. SULFASALAZINE [Suspect]
     Active Substance: SULFASALAZINE
     Indication: Rheumatoid arthritis
     Route: 065

REACTIONS (10)
  - Drug reaction with eosinophilia and systemic symptoms [Recovering/Resolving]
  - Acidosis [Recovering/Resolving]
  - Human herpesvirus 6 infection [Recovering/Resolving]
  - Rheumatoid factor increased [Recovering/Resolving]
  - Hypoxia [Recovering/Resolving]
  - Pallor [Recovering/Resolving]
  - Rash erythematous [Recovering/Resolving]
  - Hypertransaminasaemia [Recovering/Resolving]
  - Lymphadenopathy mediastinal [Recovering/Resolving]
  - Lymphadenopathy [Recovering/Resolving]
